FAERS Safety Report 5270240-0 (Version None)
Quarter: 2007Q1

REPORT INFORMATION
  Report Type: 
  Country: None (occurrence: None)
  Receive Date: 20061214
  Receipt Date: 20060928
  Transmission Date: 20070707
  Serious: No
  Sender: FDA-Public Use
  Company Number: IND-AE-06-SAN-042

PATIENT
  Age: 88 Year
  Sex: Female

DRUGS (1)
  1. SANCTURA [Suspect]
     Indication: HYPERTONIC BLADDER
     Dosage: 20 MG BID ORAL
     Route: 048
     Dates: start: 20060917, end: 20061004

REACTIONS (5)
  - CONFUSIONAL STATE [None]
  - CONSTIPATION [None]
  - DRUG INEFFECTIVE [None]
  - POLYURIA [None]
  - URINARY RETENTION [None]
